FAERS Safety Report 6089286-8 (Version None)
Quarter: 2009Q1

REPORT INFORMATION
  Report Type: 
  Country: None (occurrence: None)
  Receive Date: 20090224
  Receipt Date: 20090219
  Transmission Date: 20090719
  Serious: Yes (Death)
  Sender: FDA-Public Use
  Company Number: US-MERCK-0902USA03515

PATIENT
  Age: 42 Year
  Sex: Male

DRUGS (2)
  1. CASPOFUNGIN MSD [Suspect]
     Indication: ANTIFUNGAL TREATMENT
     Route: 042
  2. CASPOFUNGIN MSD [Suspect]
     Route: 042

REACTIONS (4)
  - DEATH [None]
  - LETHARGY [None]
  - NERVOUS SYSTEM DISORDER [None]
  - RESPIRATORY DISORDER [None]
